FAERS Safety Report 15060506 (Version 1)
Quarter: 2018Q2

REPORT INFORMATION
  Report Type: Spontaneous
  Country: US (occurrence: US)
  Receive Date: 20180605
  Receipt Date: 20180605
  Transmission Date: 20180711
  Serious: Yes (Hospitalization)
  Sender: FDA-Public Use
  Company Number: None

PATIENT
  Age: 13 Year
  Sex: Male

DRUGS (3)
  1. SODIUM CHLORIDE 7% [Suspect]
     Active Substance: SODIUM CHLORIDE
     Indication: CYSTIC FIBROSIS
     Route: 055
     Dates: start: 20171117
  2. BOOST COMPACT [Concomitant]
  3. COMPLETE FORM D3000 [Concomitant]

REACTIONS (2)
  - Hepatic encephalopathy [None]
  - Ammonia increased [None]

NARRATIVE: CASE EVENT DATE: 20180604
